FAERS Safety Report 8394845-3 (Version None)
Quarter: 2012Q1

REPORT INFORMATION
  Report Type: 
  Country: None (occurrence: None)
  Receive Date: 20120323
  Receipt Date: 20110802
  Transmission Date: 20120608
  Serious: Yes (Hospitalization, Other)
  Sender: FDA-Public Use
  Company Number: 163-21880-11032454

PATIENT
  Age: 85 Year
  Sex: Male

DRUGS (6)
  1. CALCIUM CARBONATE [Concomitant]
  2. ASCORBIC ACID [Concomitant]
  3. ANTIBIOTICS (ANTIBIOTICS) [Concomitant]
  4. REVLIMID [Suspect]
     Indication: MYELODYSPLASTIC SYNDROME
     Dosage: 10 MG, DAILY X 28 DAYS, PO
     Route: 048
     Dates: start: 20100315, end: 20110301
  5. EXJADE [Concomitant]
  6. VITAMIN E [Concomitant]

REACTIONS (2)
  - NEUTROPENIA [None]
  - CELLULITIS [None]
